FAERS Safety Report 8888753 (Version 1)
Quarter: 2012Q4

REPORT INFORMATION
  Report Type: 
  Country: DE (occurrence: DE)
  Receive Date: 20121106
  Receipt Date: 20121106
  Transmission Date: 20130627
  Serious: Yes (Congenital Anomaly, Other)
  Sender: FDA-Public Use
  Company Number: GXKR2012DE003375

PATIENT

DRUGS (3)
  1. CITALOPRAM [Suspect]
     Dosage: Maternal dose: 60 [mg/d ]
     Route: 064
  2. MODAFINIL [Suspect]
     Dosage: Maternal dose: 400 [mg/d ]
     Route: 064
  3. BETAMETHASONE [Concomitant]
     Dosage: in gestational week 32
     Route: 064

REACTIONS (6)
  - Atrial septal defect [Unknown]
  - Patent ductus arteriosus [Unknown]
  - Neonatal respiratory distress syndrome [Recovered/Resolved]
  - Apnoea [Recovered/Resolved]
  - Drug withdrawal syndrome neonatal [Recovered/Resolved]
  - Foetal exposure during pregnancy [Unknown]
